FAERS Safety Report 6612482-5 (Version None)
Quarter: 2010Q1

REPORT INFORMATION
  Report Type: 
  Country: None (occurrence: None)
  Receive Date: 20100303
  Receipt Date: 20100224
  Transmission Date: 20100710
  Serious: Yes (Other)
  Sender: FDA-Public Use
  Company Number: AU-PFIZER INC-2010023565

PATIENT
  Age: 53 Year
  Sex: Male

DRUGS (2)
  1. CELEBREX [Suspect]
     Indication: ARTHRITIS
     Dosage: 200 MG, 1X/DAY (4 DOSES)
     Dates: start: 20090101
  2. PANADOL [Suspect]
     Dosage: UNK
     Dates: start: 20100223

REACTIONS (4)
  - OEDEMA MOUTH [None]
  - OEDEMA PERIPHERAL [None]
  - RASH [None]
  - SWELLING FACE [None]
